FAERS Safety Report 4565540-3 (Version None)
Quarter: 2005Q1

REPORT INFORMATION
  Report Type: 
  Country: None (occurrence: None)
  Receive Date: 20050126
  Receipt Date: 20050106
  Transmission Date: 20050727
  Serious: Yes (Hospitalization, Other)
  Sender: FDA-Public Use
  Company Number: USA041184059

PATIENT
  Age: 75 Year
  Sex: Female
  Weight: 38 kg

DRUGS (11)
  1. FORTEO [Suspect]
     Indication: OSTEOPOROSIS
     Dosage: 20 UG/ 1 DAY
     Dates: start: 20031201
  2. MACROBID [Concomitant]
  3. PROTONIX [Concomitant]
  4. OSCAL 500-D [Concomitant]
  5. NEURONTIN (GABAPENTIN PFIZER) [Concomitant]
  6. VITAMIN B-12 [Concomitant]
  7. PYRIDIUM (PHENAZOPYRIDINE HYDROCHLORIDE) [Concomitant]
  8. COLACE (DOCUSATE SODIUM) [Concomitant]
  9. PERCOCET [Concomitant]
  10. OXYCONTIN [Concomitant]
  11. LASIX [Concomitant]

REACTIONS (16)
  - BODY HEIGHT DECREASED [None]
  - CARDIAC DISORDER [None]
  - CHOLELITHIASIS [None]
  - DRUG TOXICITY [None]
  - DYSPNOEA [None]
  - FALL [None]
  - HIP FRACTURE [None]
  - HYPOXIA [None]
  - MUSCLE ATROPHY [None]
  - NEUROPATHY [None]
  - ORAL INTAKE REDUCED [None]
  - PANCREATITIS [None]
  - PERIPHERAL COLDNESS [None]
  - PHARMACEUTICAL PRODUCT COMPLAINT [None]
  - WEIGHT DECREASED [None]
  - WRIST FRACTURE [None]
